FAERS Safety Report 8360255-8 (Version None)
Quarter: 2012Q2

REPORT INFORMATION
  Report Type: 
  Country: None (occurrence: None)
  Receive Date: 20120515
  Receipt Date: 20120509
  Transmission Date: 20120825
  Serious: Yes (Life-Threatening, Other)
  Sender: FDA-Public Use
  Company Number: US-BAYER-2011-032082

PATIENT
  Age: 32 Year
  Sex: Female
  Weight: 58.95 kg

DRUGS (2)
  1. YAZ [Suspect]
     Dosage: UNK, QD
     Route: 048
     Dates: start: 20071001, end: 20090701
  2. ASPIRIN [Concomitant]
     Dosage: DAILY
     Dates: start: 20100401

REACTIONS (8)
  - LOSS OF CONSCIOUSNESS [None]
  - PAIN [None]
  - TRANSIENT ISCHAEMIC ATTACK [None]
  - PULMONARY EMBOLISM [None]
  - ANXIETY [None]
  - HYPOAESTHESIA [None]
  - ANHEDONIA [None]
  - CEREBROVASCULAR ACCIDENT [None]
